FAERS Safety Report 17330821 (Version 1)
Quarter: 2020Q1

REPORT INFORMATION
  Report Type: Spontaneous
  Country: US (occurrence: US)
  Receive Date: 20200128
  Receipt Date: 20200128
  Transmission Date: 20200409
  Serious: Yes (Other)
  Sender: FDA-Public Use
  Company Number: US-MYLANLABS-2020M1010386

PATIENT
  Age: 69 Year
  Sex: Male

DRUGS (4)
  1. DOXORUBICIN [Suspect]
     Active Substance: DOXORUBICIN
     Indication: HODGKIN^S DISEASE MIXED CELLULARITY STAGE UNSPECIFIED
     Route: 065
  2. BLEOMYCIN [Suspect]
     Active Substance: BLEOMYCIN SULFATE
     Indication: HODGKIN^S DISEASE MIXED CELLULARITY STAGE UNSPECIFIED
     Route: 065
  3. DACARBAZINE. [Suspect]
     Active Substance: DACARBAZINE
     Indication: HODGKIN^S DISEASE MIXED CELLULARITY STAGE UNSPECIFIED
     Route: 065
  4. VINBLASTINE [Suspect]
     Active Substance: VINBLASTINE
     Indication: HODGKIN^S DISEASE MIXED CELLULARITY STAGE UNSPECIFIED
     Route: 065

REACTIONS (5)
  - Ileus [Unknown]
  - Abdominal pain [Unknown]
  - Vomiting [Unknown]
  - Febrile neutropenia [Unknown]
  - Peripheral sensory neuropathy [Recovering/Resolving]
